FAERS Safety Report 6036409-2 (Version None)
Quarter: 2009Q1

REPORT INFORMATION
  Report Type: 
  Country: None (occurrence: None)
  Receive Date: 20090112
  Receipt Date: 20090107
  Transmission Date: 20090719
  Serious: Yes (Hospitalization)
  Sender: FDA-Public Use
  Company Number: SPV1-2008-02831

PATIENT
  Age: 78 Year
  Sex: Male

DRUGS (7)
  1. FOSRENOL [Suspect]
     Dosage: 1000 MG, WITH MEALS, ORAL
     Route: 048
     Dates: start: 20080901
  2. COLESE (MEBEVERINE HYDROCHLORIDE) [Concomitant]
  3. AMBIEN [Concomitant]
  4. AMIODARONE HCL [Concomitant]
  5. ASPIRIN [Concomitant]
  6. CEFADROXIL [Concomitant]
  7. FEXOFENADINE HCL [Concomitant]

REACTIONS (2)
  - DYSPNOEA [None]
  - VASCULAR GRAFT [None]
